FAERS Safety Report 12695444 (Version 2)
Quarter: 2016Q3

REPORT INFORMATION
  Report Type: Spontaneous
  Country: DK (occurrence: DK)
  Receive Date: 20160829
  Receipt Date: 20160831
  Transmission Date: 20161109
  Serious: Yes (Hospitalization)
  Sender: FDA-Public Use
  Company Number: DK-JNJFOC-20160823866

PATIENT
  Age: 39 Year
  Sex: Female

DRUGS (2)
  1. CETIRIZIN [Concomitant]
     Active Substance: CETIRIZINE HYDROCHLORIDE
     Indication: HYPERSENSITIVITY
     Route: 065
  2. VERMOX [Suspect]
     Active Substance: MEBENDAZOLE
     Indication: HELMINTHIC INFECTION
     Route: 048
     Dates: start: 201606, end: 201607

REACTIONS (12)
  - Faeces pale [Unknown]
  - Alanine aminotransferase increased [Recovering/Resolving]
  - Blood acid phosphatase increased [Recovering/Resolving]
  - Liver disorder [Recovering/Resolving]
  - Choluria [Unknown]
  - Blood bilirubin increased [Recovering/Resolving]
  - Jaundice [Unknown]
  - Abdominal pain upper [Unknown]
  - Nausea [Unknown]
  - Coagulation factor decreased [Recovering/Resolving]
  - Malaise [Unknown]
  - Fatigue [Unknown]

NARRATIVE: CASE EVENT DATE: 201607
